FAERS Safety Report 5091214-9 (Version None)
Quarter: 2006Q3

REPORT INFORMATION
  Report Type: 
  Country: None (occurrence: None)
  Receive Date: 20060824
  Receipt Date: 20060811
  Transmission Date: 20061208
  Serious: Yes (Hospitalization, Other)
  Sender: FDA-Public Use
  Company Number: 2006098850

PATIENT
  Sex: Female

DRUGS (2)
  1. LYRICA [Suspect]
     Dates: start: 20060701
  2. GEODON [Suspect]
     Dates: start: 20060701

REACTIONS (1)
  - UNEVALUABLE EVENT [None]
